FAERS Safety Report 8796108 (Version 1)
Quarter: 2012Q4

REPORT INFORMATION
  Report Type: 
  Country: US (occurrence: US)
  Receive Date: 20120919
  Receipt Date: 20120919
  Transmission Date: 20130627
  Serious: Yes (Other)
  Sender: FDA-Public Use
  Company Number: CHPA2012US019562

PATIENT
  Age: 88 Year
  Sex: Male

DRUGS (2)
  1. EX-LAX (SENNOSIDES) [Suspect]
     Indication: CONSTIPATION
     Dosage: 2 DF, at bedtime
     Route: 048
     Dates: start: 20120907, end: 20120909
  2. DRUG USED IN DIABETES [Concomitant]
     Indication: DIABETES MELLITUS
     Dosage: UNK, UNK
     Route: 048

REACTIONS (2)
  - Blood glucose increased [Recovered/Resolved]
  - Concomitant disease aggravated [Recovered/Resolved]
